FAERS Safety Report 14273423 (Version 2)
Quarter: 2018Q3

REPORT INFORMATION
  Report Type: Spontaneous
  Country: US (occurrence: US)
  Receive Date: 20171211
  Receipt Date: 20180706
  Transmission Date: 20181010
  Serious: Yes (Other)
  Sender: FDA-Public Use
  Company Number: US-OTSUKA-2017_018426

PATIENT
  Sex: Female

DRUGS (1)
  1. ABILIFY [Suspect]
     Active Substance: ARIPIPRAZOLE
     Indication: MAJOR DEPRESSION
     Dosage: 10 MG, UNK
     Route: 065
     Dates: start: 2007, end: 201705

REACTIONS (12)
  - Compulsive sexual behaviour [Recovered/Resolved]
  - Impulsive behaviour [Recovered/Resolved]
  - Gambling disorder [Recovered/Resolved]
  - Psychosexual disorder [Recovered/Resolved]
  - Obsessive-compulsive disorder [Recovered/Resolved]
  - Emotional distress [Unknown]
  - Eating disorder [Recovered/Resolved]
  - Economic problem [Unknown]
  - Injury [Unknown]
  - Compulsive shopping [Recovered/Resolved]
  - Suicidal ideation [Recovered/Resolved]
  - Suicide attempt [Recovered/Resolved]
